FAERS Safety Report 18071521 (Version 1)
Quarter: 2020Q3

REPORT INFORMATION
  Report Type: Spontaneous
  Country: US (occurrence: US)
  Receive Date: 20200724
  Receipt Date: 20200724
  Transmission Date: 20201103
  Serious: Yes (Hospitalization)
  Sender: FDA-Public Use
  Company Number: None

PATIENT
  Age: 11 Year
  Sex: Male

DRUGS (11)
  1. CHLORHEX GLU [Concomitant]
  2. FLUTICASONE. [Concomitant]
     Active Substance: FLUTICASONE
  3. AZITHROMYCIN ANHYDROUS. [Concomitant]
     Active Substance: AZITHROMYCIN ANHYDROUS
  4. OSELTAMIVIR [Concomitant]
     Active Substance: OSELTAMIVIR
  5. RIFAMPIN. [Concomitant]
     Active Substance: RIFAMPIN
  6. ADVAIR HFA [Concomitant]
     Active Substance: FLUTICASONE PROPIONATE\SALMETEROL XINAFOATE
  7. AMOX/K CLAV [Concomitant]
     Active Substance: AMOXICILLIN\CLAVULANATE POTASSIUM
  8. SMZ/TMP DS [Concomitant]
     Active Substance: SULFAMETHOXAZOLE\TRIMETHOPRIM
  9. MONTELUKAST [Concomitant]
     Active Substance: MONTELUKAST SODIUM
  10. MUPIROCIN. [Concomitant]
     Active Substance: MUPIROCIN
  11. PULMOZYME [Suspect]
     Active Substance: DORNASE ALFA
     Indication: CYSTIC FIBROSIS
     Route: 055
     Dates: start: 20180130

REACTIONS (1)
  - Appendicectomy [None]

NARRATIVE: CASE EVENT DATE: 20200706
